FAERS Safety Report 13201472 (Version 1)
Quarter: 2017Q1

REPORT INFORMATION
  Report Type: Spontaneous
  Country: US (occurrence: US)
  Receive Date: 20170209
  Receipt Date: 20170209
  Transmission Date: 20170428
  Serious: No
  Sender: FDA-Public Use
  Company Number: US-ENDO PHARMACEUTICALS INC-2016-000497

PATIENT
  Age: 62 Year
  Sex: Female
  Weight: 65.38 kg

DRUGS (3)
  1. METHYLPREDNISOLONE TABLETS 4MG [Suspect]
     Active Substance: METHYLPREDNISOLONE
     Indication: INFLAMMATION
     Dosage: 6 TABLETS PER DAY, TAPERING BY 1 TABLET EACH DAY
     Route: 065
     Dates: start: 20160107, end: 20160112
  2. LEVOTHYROXINE. [Concomitant]
     Active Substance: LEVOTHYROXINE
     Indication: HYPOTHYROIDISM
  3. AMOXICILLIN W/ CLAVULANATE POTASSIUM [Concomitant]
     Active Substance: AMOXICILLIN\CLAVULANATE POTASSIUM
     Indication: INFLAMMATION

REACTIONS (1)
  - Tremor [Not Recovered/Not Resolved]

NARRATIVE: CASE EVENT DATE: 20160113
